FAERS Safety Report 18472993 (Version 1)
Quarter: 2020Q4

REPORT INFORMATION
  Report Type: Spontaneous
  Country: SA (occurrence: SA)
  Receive Date: 20201106
  Receipt Date: 20201106
  Transmission Date: 20210114
  Serious: Yes (Hospitalization, Other)
  Sender: FDA-Public Use
  Company Number: SA-JNJFOC-20201051904

PATIENT
  Age: 28 Year
  Sex: Female

DRUGS (6)
  1. NIFEDIPINE. [Concomitant]
     Active Substance: NIFEDIPINE
     Dosage: 30 MG
  2. OMEPRAZOLE. [Concomitant]
     Active Substance: OMEPRAZOLE
     Dosage: 20 MG
  3. PREDNISONE. [Concomitant]
     Active Substance: PREDNISONE
     Dosage: 5 MG
  4. CALCIUM [Concomitant]
     Active Substance: CALCIUM
     Dosage: 600 MG
  5. VITAMIN D                          /00107901/ [Concomitant]
     Active Substance: ERGOCALCIFEROL
     Dosage: 2000 IU
  6. BOSENTAN. [Suspect]
     Active Substance: BOSENTAN
     Indication: SKIN ULCER
     Route: 065

REACTIONS (3)
  - Gangrene [Recovering/Resolving]
  - Treatment failure [Unknown]
  - Horner^s syndrome [Recovered/Resolved]
